FAERS Safety Report 5836043-0 (Version None)
Quarter: 2008Q3

REPORT INFORMATION
  Report Type: 
  Country: None (occurrence: None)
  Receive Date: 20080806
  Receipt Date: 20080725
  Transmission Date: 20090109
  Serious: Yes (Hospitalization, Other)
  Sender: FDA-Public Use
  Company Number: US-PFIZER INC-2008063005

PATIENT
  Sex: Female
  Weight: 59 kg

DRUGS (6)
  1. LYRICA [Suspect]
     Indication: NEURALGIA
  2. METHADONE HCL [Concomitant]
  3. CYMBALTA [Concomitant]
  4. OXYCODONE HCL [Concomitant]
  5. PREVACID [Concomitant]
  6. CELEBREX [Concomitant]

REACTIONS (3)
  - FALL [None]
  - PAIN [None]
  - WEIGHT INCREASED [None]
